FAERS Safety Report 6041021-5 (Version None)
Quarter: 2009Q1

REPORT INFORMATION
  Report Type: 
  Country: None (occurrence: None)
  Receive Date: 20090116
  Receipt Date: 20080728
  Transmission Date: 20090719
  Serious: No
  Sender: FDA-Public Use
  Company Number: US-BRISTOL-MYERS SQUIBB COMPANY-14279632

PATIENT
  Sex: Female
  Weight: 73 kg

DRUGS (6)
  1. ABILIFY [Suspect]
     Dates: start: 20080601
  2. TEGRETOL [Concomitant]
  3. SYNTHROID [Concomitant]
  4. PROZAC [Concomitant]
  5. ZYRTEC [Concomitant]
  6. MAXIDEX [Concomitant]

REACTIONS (1)
  - WEIGHT INCREASED [None]
